FAERS Safety Report 8047940-2 (Version None)
Quarter: 2012Q1

REPORT INFORMATION
  Report Type: 
  Country: None (occurrence: None)
  Receive Date: 20120116
  Receipt Date: 20120103
  Transmission Date: 20120608
  Serious: Yes (Hospitalization)
  Sender: FDA-Public Use
  Company Number: US-ABBOTT-12P-163-0889888-01

PATIENT
  Sex: Male

DRUGS (7)
  1. BETA BLOCKERS [Concomitant]
     Indication: PRODUCT USED FOR UNKNOWN INDICATION
  2. ASPIRIN [Concomitant]
     Indication: PRODUCT USED FOR UNKNOWN INDICATION
  3. NIASPAN [Suspect]
     Indication: DYSLIPIDAEMIA
     Route: 048
     Dates: start: 20080114, end: 20100301
  4. SIMVASTATIN [Concomitant]
     Indication: ARTERIOSCLEROSIS
  5. SIMVASTATIN [Concomitant]
     Indication: DYSLIPIDAEMIA
     Route: 048
     Dates: start: 20080114, end: 20100301
  6. NIASPAN [Suspect]
     Indication: ARTERIOSCLEROSIS
  7. OTHER DIABETIC TREATMENT [Concomitant]
     Indication: PRODUCT USED FOR UNKNOWN INDICATION

REACTIONS (1)
  - NEPHROLITHIASIS [None]
